FAERS Safety Report 7958060-7 (Version None)
Quarter: 2011Q4

REPORT INFORMATION
  Report Type: 
  Country: None (occurrence: None)
  Receive Date: 20111205
  Receipt Date: 20111125
  Transmission Date: 20120403
  Serious: Yes (Hospitalization, Other)
  Sender: FDA-Public Use
  Company Number: DE-ELI_LILLY_AND_COMPANY-DE201111007749

PATIENT
  Age: 7 Year
  Sex: Male

DRUGS (2)
  1. HUMATROPE [Suspect]
     Dosage: UNK, UNKNOWN
     Route: 058
  2. LIDOCAINE [Concomitant]
     Dosage: UNK, UNKNOWN

REACTIONS (6)
  - DRUG INTERACTION [None]
  - BURNING SENSATION [None]
  - DIZZINESS [None]
  - BALANCE DISORDER [None]
  - VOMITING [None]
  - SYNCOPE [None]
